FAERS Safety Report 10345042 (Version 1)
Quarter: 2014Q3

REPORT INFORMATION
  Report Type: Spontaneous
  Country: US (occurrence: None)
  Receive Date: 20140725
  Receipt Date: 20140725
  Transmission Date: 20150326
  Serious: Yes (Life-Threatening)
  Sender: FDA-Public Use
  Company Number: None

PATIENT
  Age: 79 Year
  Sex: Male
  Weight: 77.11 kg

DRUGS (2)
  1. JANTOVEN [Suspect]
     Active Substance: WARFARIN SODIUM
     Indication: ATRIAL FIBRILLATION
     Dosage: CHRONIC 01/012014-07/23/2014
     Route: 048
     Dates: start: 20140101, end: 20140723
  2. ASPIRIN EC [Suspect]
     Active Substance: ASPIRIN
     Indication: ATRIAL FIBRILLATION
     Route: 048
     Dates: start: 20140101, end: 20140723

REACTIONS (3)
  - Brain herniation [None]
  - Cerebral haemorrhage [None]
  - Hyporesponsive to stimuli [None]

NARRATIVE: CASE EVENT DATE: 20140723
